FAERS Safety Report 5383722-8 (Version None)
Quarter: 2007Q3

REPORT INFORMATION
  Report Type: 
  Country: None (occurrence: None)
  Receive Date: 20070706
  Receipt Date: 20070627
  Transmission Date: 20080115
  Serious: Yes (Other)
  Sender: FDA-Public Use
  Company Number: 2007RL000294

PATIENT
  Age: 23 Year
  Sex: Male

DRUGS (1)
  1. RYTHMOL [Suspect]
     Indication: ATRIAL FIBRILLATION
     Dosage: 250 MG; TID; PO
     Route: 048

REACTIONS (4)
  - ATRIAL FIBRILLATION [None]
  - DRUG TOXICITY [None]
  - HAEMOCHROMATOSIS [None]
  - HEPATOTOXICITY [None]
